FAERS Safety Report 13019117 (Version 1)
Quarter: 2016Q4

REPORT INFORMATION
  Report Type: Spontaneous
  Country: DE (occurrence: DE)
  Receive Date: 20161212
  Receipt Date: 20161212
  Transmission Date: 20170207
  Serious: Yes (Other)
  Sender: FDA-Public Use
  Company Number: GXKR2016DE005651

PATIENT
  Age: 85 Year
  Sex: Female

DRUGS (1)
  1. AMOXIHEXAL [Suspect]
     Active Substance: AMOXICILLIN
     Indication: BRONCHITIS
     Dosage: 1000 MG, 3X DAILY
     Route: 048
     Dates: start: 20161206

REACTIONS (2)
  - Hypertension [Unknown]
  - Diarrhoea [Unknown]
